FAERS Safety Report 5793913-X (Version None)
Quarter: 2008Q2

REPORT INFORMATION
  Report Type: 
  Country: None (occurrence: None)
  Receive Date: 20080627
  Receipt Date: 20080617
  Transmission Date: 20081010
  Serious: Yes (Other)
  Sender: FDA-Public Use
  Company Number: US-PFIZER INC-2008050943

PATIENT
  Sex: Male

DRUGS (3)
  1. CALAN [Suspect]
     Indication: HEART DISEASE CONGENITAL
  2. DIGOXIN [Concomitant]
  3. ENALAPRIL MALEATE [Concomitant]

REACTIONS (1)
  - INFERTILITY [None]
